FAERS Safety Report 9097108 (Version 2)
Quarter: 2013Q2

REPORT INFORMATION
  Report Type: Spontaneous
  Country: US (occurrence: None)
  Receive Date: 20130125
  Receipt Date: 20130404
  Transmission Date: 20140414
  Serious: Yes (Hospitalization, Other)
  Sender: FDA-Public Use
  Company Number: ADR-2013-00099

PATIENT
  Age: 45 Year
  Sex: Female

DRUGS (1)
  1. LIORESAL INTRATHECAL [Suspect]
     Indication: MUSCLE SPASTICITY

REACTIONS (7)
  - Drug withdrawal syndrome [None]
  - Mental status changes [None]
  - Drug effect decreased [None]
  - Muscle spasticity [None]
  - Pruritus [None]
  - Dyskinesia [None]
  - Condition aggravated [None]
